FAERS Safety Report 23040460 (Version 2)
Quarter: 2023Q4

REPORT INFORMATION
  Report Type: Report from Study
  Country: AT (occurrence: AT)
  Receive Date: 20231006
  Receipt Date: 20231027
  Transmission Date: 20240110
  Serious: Yes (Hospitalization)
  Sender: FDA-Public Use
  Company Number: AT-JNJFOC-20230970045

PATIENT
  Age: 77 Year
  Sex: Male
  Weight: 55.1 kg

DRUGS (20)
  1. CILTACABTAGENE AUTOLEUCEL [Suspect]
     Active Substance: CILTACABTAGENE AUTOLEUCEL
     Indication: Plasma cell myeloma
     Route: 042
     Dates: start: 20230830, end: 20230830
  2. CYCLOPHOSPHAMIDE [Concomitant]
     Active Substance: CYCLOPHOSPHAMIDE
     Indication: Plasma cell myeloma
     Route: 042
     Dates: start: 20230825, end: 20230827
  3. FLUDARABINE [Concomitant]
     Active Substance: FLUDARABINE PHOSPHATE
     Indication: Plasma cell myeloma
     Route: 042
     Dates: start: 20230825, end: 20230827
  4. PANTOPRAZOLE [Concomitant]
     Active Substance: PANTOPRAZOLE
     Indication: Gastrooesophageal reflux disease
     Route: 048
     Dates: start: 20220101
  5. XGEVA [Concomitant]
     Active Substance: DENOSUMAB
     Indication: Osteoporosis prophylaxis
     Route: 058
     Dates: start: 20220801
  6. BISACODYL [Concomitant]
     Active Substance: BISACODYL
     Indication: Constipation prophylaxis
     Route: 048
     Dates: start: 20230130
  7. SULFAMETROLE\TRIMETHOPRIM [Concomitant]
     Active Substance: SULFAMETROLE\TRIMETHOPRIM
     Indication: Infection prophylaxis
     Dosage: 800/160 MG
     Route: 048
     Dates: start: 20230130
  8. POLYETHYLENE GLYCOL 3350\POTASSIUM CHLORIDE\SODIUM BICARBONATE\SODIUM [Concomitant]
     Active Substance: POLYETHYLENE GLYCOL 3350\POTASSIUM CHLORIDE\SODIUM BICARBONATE\SODIUM CHLORIDE
     Indication: Constipation prophylaxis
     Route: 048
     Dates: start: 20230130
  9. ONDANSETRON HYDROCHLORIDE [Concomitant]
     Active Substance: ONDANSETRON HYDROCHLORIDE
     Indication: Prophylaxis of nausea and vomiting
     Route: 048
     Dates: start: 20230130
  10. METOCLOPRAMIDE HYDROCHLORIDE [Concomitant]
     Active Substance: METOCLOPRAMIDE HYDROCHLORIDE
     Indication: Prophylaxis of nausea and vomiting
     Route: 048
     Dates: start: 20230130
  11. VALACYCLOVIR HYDROCHLORIDE [Concomitant]
     Active Substance: VALACYCLOVIR HYDROCHLORIDE
     Indication: Antiviral prophylaxis
     Route: 048
     Dates: start: 20230130
  12. HYDROMORPHONE HYDROCHLORIDE [Concomitant]
     Active Substance: HYDROMORPHONE HYDROCHLORIDE
     Indication: Back pain
     Route: 048
     Dates: start: 20230403
  13. VITAMINS WITH MINERALS [Concomitant]
     Active Substance: MINERALS\VITAMINS
     Indication: Vitamin D deficiency
     Dosage: 600/400  DOSAGE FORMS
     Route: 048
     Dates: start: 20230411
  14. ACETAMINOPHEN [Concomitant]
     Active Substance: ACETAMINOPHEN
     Indication: Back pain
     Route: 048
     Dates: start: 20230425
  15. ENOXAPARIN SODIUM [Concomitant]
     Active Substance: ENOXAPARIN SODIUM
     Indication: Prophylaxis
     Dosage: 4000
     Route: 058
     Dates: start: 20230505
  16. BUPRENORPHINE [Concomitant]
     Active Substance: BUPRENORPHINE
     Indication: Peripheral sensory neuropathy
     Route: 050
     Dates: start: 20230526
  17. BUPRENORPHINE [Concomitant]
     Active Substance: BUPRENORPHINE
     Indication: Neuralgia
  18. PREGABALIN [Concomitant]
     Active Substance: PREGABALIN
     Indication: Peripheral sensory neuropathy
     Route: 048
     Dates: start: 20230526
  19. PREGABALIN [Concomitant]
     Active Substance: PREGABALIN
     Indication: Neuralgia
  20. CHOLECALCIFEROL [Concomitant]
     Active Substance: CHOLECALCIFEROL
     Indication: Vitamin D deficiency
     Route: 048
     Dates: start: 20230411

REACTIONS (1)
  - Paraparesis [Recovered/Resolved]

NARRATIVE: CASE EVENT DATE: 20230926
